FAERS Safety Report 7918676-0 (Version None)
Quarter: 2011Q4

REPORT INFORMATION
  Report Type: 
  Country: None (occurrence: None)
  Receive Date: 20111116
  Receipt Date: 20111111
  Transmission Date: 20120403
  Serious: Yes (Other)
  Sender: FDA-Public Use
  Company Number: CHPA2011SE015902

PATIENT
  Age: 5 Year
  Sex: Female

DRUGS (1)
  1. CLEMASTINE FUMARATE [Suspect]
     Indication: URTICARIA
     Dosage: 0.5 MG, BID
     Route: 048
     Dates: start: 20111108, end: 20111110

REACTIONS (3)
  - PARANOIA [None]
  - OVERDOSE [None]
  - FEAR [None]
